FAERS Safety Report 4708546-3 (Version None)
Quarter: 2005Q3

REPORT INFORMATION
  Report Type: 
  Country: None (occurrence: None)
  Receive Date: 20050707
  Receipt Date: 20050628
  Transmission Date: 20060218
  Serious: Yes (Hospitalization)
  Sender: FDA-Public Use
  Company Number: SE-GLAXOSMITHKLINE-B0386730A

PATIENT
  Age: 42 Year
  Sex: Female

DRUGS (1)
  1. VALTREX [Suspect]
     Indication: HERPES ZOSTER
     Dosage: 3G PER DAY
     Route: 048
     Dates: start: 20050401, end: 20050408

REACTIONS (6)
  - CHROMATURIA [None]
  - DIAPHRAGMALGIA [None]
  - HEPATOMEGALY [None]
  - LIVER DISORDER [None]
  - NAUSEA [None]
  - OCULAR ICTERUS [None]
